FAERS Safety Report 9187005 (Version 2)
Quarter: 2013Q2

REPORT INFORMATION
  Report Type: Spontaneous
  Country: US (occurrence: US)
  Receive Date: 20130325
  Receipt Date: 20130529
  Transmission Date: 20140414
  Serious: Yes (Hospitalization, Other)
  Sender: FDA-Public Use
  Company Number: US-PFIZER INC-2013093083

PATIENT
  Age: 50 Year
  Sex: Male

DRUGS (3)
  1. CHANTIX [Suspect]
     Dosage: STARTER PACK AS DIRECTED
     Dates: start: 20061101
  2. CHANTIX [Suspect]
     Dosage: UNK
     Dates: start: 20070101, end: 20070129
  3. XANAX [Concomitant]
     Dosage: UNK

REACTIONS (2)
  - Intentional overdose [Unknown]
  - Suicide attempt [Unknown]
